FAERS Safety Report 23679839 (Version 1)
Quarter: 2024Q1

REPORT INFORMATION
  Report Type: Spontaneous
  Country: US (occurrence: US)
  Receive Date: 20240327
  Receipt Date: 20240327
  Transmission Date: 20240410
  Serious: Yes (Disabling, Other)
  Sender: FDA-Public Use
  Company Number: US-PURDUE PHARMA-USA-2024-0308638

PATIENT
  Sex: Male

DRUGS (6)
  1. OXYCONTIN [Suspect]
     Active Substance: OXYCODONE HYDROCHLORIDE
     Indication: Back pain
     Dosage: UNK
     Route: 048
  2. OXYCODONE HYDROCHLORIDE [Suspect]
     Active Substance: OXYCODONE HYDROCHLORIDE
     Indication: Back pain
     Dosage: UNK
     Route: 048
  3. MORPHINE SULFATE [Suspect]
     Active Substance: MORPHINE SULFATE
     Indication: Back pain
     Dosage: UNK
     Route: 048
  4. DILAUDID [Suspect]
     Active Substance: HYDROMORPHONE HYDROCHLORIDE
     Indication: Back pain
     Dosage: UNK
     Route: 048
  5. HYDROCODONE BITARTRATE AND ACETAMINOPHEN [Suspect]
     Active Substance: ACETAMINOPHEN\HYDROCODONE BITARTRATE
     Indication: Back pain
     Dosage: UNK
     Route: 048
  6. ACETAMINOPHEN\OXYCODONE HYDROCHLORIDE [Suspect]
     Active Substance: ACETAMINOPHEN\OXYCODONE HYDROCHLORIDE
     Indication: Back pain
     Dosage: UNK
     Route: 048

REACTIONS (2)
  - Drug dependence [Unknown]
  - Nerve injury [Unknown]
